FAERS Safety Report 26179837 (Version 1)
Quarter: 2025Q4

REPORT INFORMATION
  Report Type: Report from Study
  Country: CN (occurrence: CN)
  Receive Date: 20251219
  Receipt Date: 20251219
  Transmission Date: 20260117
  Serious: Yes (Other)
  Sender: ROCHE
  Company Number: CN-ROCHE-10000429727

PATIENT

DRUGS (15)
  1. BEVACIZUMAB [Suspect]
     Active Substance: BEVACIZUMAB
     Indication: Non-small cell lung cancer
     Dosage: CONTINUED FOR MAINTENANCE?TREATMENT UNTIL DISEASE PROGRESSION OCCURS
     Route: 042
  2. BEVACIZUMAB [Suspect]
     Active Substance: BEVACIZUMAB
     Indication: Gene mutation
  3. BEVACIZUMAB [Suspect]
     Active Substance: BEVACIZUMAB
     Indication: Acquired gene mutation
  4. CARBOPLATIN [Suspect]
     Active Substance: CARBOPLATIN
     Indication: Non-small cell lung cancer
     Dosage: EVERY 3-4 WEEKS OVER 4-6 CYCLES.?CONCENTRATION-TIME CURVE OF 5 MG/ML
     Route: 042
  5. CARBOPLATIN [Suspect]
     Active Substance: CARBOPLATIN
     Indication: Gene mutation
  6. CARBOPLATIN [Suspect]
     Active Substance: CARBOPLATIN
     Indication: Acquired gene mutation
  7. CISPLATIN [Suspect]
     Active Substance: CISPLATIN
     Indication: Non-small cell lung cancer
     Dosage: EVERY 3-4 WEEKS OVER 4-6 CYCLES.
     Route: 042
  8. CISPLATIN [Suspect]
     Active Substance: CISPLATIN
     Indication: Gene mutation
  9. CISPLATIN [Suspect]
     Active Substance: CISPLATIN
     Indication: Acquired gene mutation
  10. PEMETREXED [Suspect]
     Active Substance: PEMETREXED
     Indication: Non-small cell lung cancer
  11. PEMETREXED [Suspect]
     Active Substance: PEMETREXED
     Indication: Gene mutation
  12. PEMETREXED [Suspect]
     Active Substance: PEMETREXED
     Indication: Acquired gene mutation
  13. GEFITINIB [Suspect]
     Active Substance: GEFITINIB
     Indication: Non-small cell lung cancer
     Route: 048
  14. GEFITINIB [Suspect]
     Active Substance: GEFITINIB
     Indication: Gene mutation
  15. GEFITINIB [Suspect]
     Active Substance: GEFITINIB
     Indication: Acquired gene mutation

REACTIONS (17)
  - Anaemia [Unknown]
  - Leukopenia [Unknown]
  - Neutropenia [Unknown]
  - Thrombocytopenia [Unknown]
  - Transaminases increased [Unknown]
  - Renal impairment [Unknown]
  - Decreased appetite [Unknown]
  - Vomiting [Unknown]
  - Nausea [Unknown]
  - Diarrhoea [Unknown]
  - Stomatitis [Unknown]
  - Rash [Unknown]
  - Paronychia [Unknown]
  - Asthenia [Unknown]
  - Hypertension [Unknown]
  - Haemorrhage [Unknown]
  - Superficial vein thrombosis [Unknown]
